FAERS Safety Report 19188016 (Version 1)
Quarter: 2021Q2

REPORT INFORMATION
  Report Type: Spontaneous
  Country: PL (occurrence: PL)
  Receive Date: 20210427
  Receipt Date: 20210427
  Transmission Date: 20210717
  Serious: Yes (Life-Threatening, Hospitalization, Other)
  Sender: FDA-Public Use
  Company Number: PL-GLAXOSMITHKLINE-PL2021087686

PATIENT
  Age: 69 Year
  Sex: Female

DRUGS (11)
  1. ACETYLSALICYLIC ACID [Interacting]
     Active Substance: ASPIRIN
     Indication: VIRAL INFECTION
     Dosage: UNK
     Route: 048
  2. METOPROLOL. [Interacting]
     Active Substance: METOPROLOL
     Indication: HYPERTENSION
     Dosage: 200 MG, QD
     Route: 048
  3. METOPROLOL. [Interacting]
     Active Substance: METOPROLOL
     Dosage: 100 MG, QD
     Route: 048
  4. DABIGATRAN [Interacting]
     Active Substance: DABIGATRAN
     Indication: ANTICOAGULANT THERAPY
     Dosage: 300 MG, QD
     Route: 048
  5. ITRAKONAZOL [Interacting]
     Active Substance: ITRACONAZOLE
     Indication: TINEA VERSICOLOUR
     Dosage: 200 MG, 1D
     Route: 048
  6. NIMESULID [Interacting]
     Active Substance: NIMESULIDE
     Indication: ANTIINFLAMMATORY THERAPY
  7. KETOPROFEN. [Suspect]
     Active Substance: KETOPROFEN
     Indication: ANALGESIC THERAPY
     Dosage: UNK
     Route: 048
  8. NIMESULID [Interacting]
     Active Substance: NIMESULIDE
     Indication: PAIN
     Dosage: 100 MG, BID
     Route: 048
  9. AMLODIPINE + INDAPAMIDE + PERINDOPRIL [Interacting]
     Active Substance: AMLODIPINE\INDAPAMIDE\PERINDOPRIL
     Indication: HYPERTENSION
     Dosage: 1 DF, QD
     Route: 048
  10. PROPAFENONE. [Suspect]
     Active Substance: PROPAFENONE
     Indication: ATRIAL FIBRILLATION
     Dosage: 300 MG
     Route: 048
  11. ROSUVASTATIN. [Interacting]
     Active Substance: ROSUVASTATIN
     Indication: PRODUCT USED FOR UNKNOWN INDICATION
     Dosage: 10 MG, QD
     Route: 048

REACTIONS (23)
  - Haemorrhage [Unknown]
  - Cardiomyopathy [Recovered/Resolved]
  - Product prescribing issue [Recovered/Resolved]
  - Drug interaction [Recovered/Resolved]
  - Drug ineffective [Unknown]
  - Syncope [Recovered/Resolved]
  - Troponin increased [Recovered/Resolved]
  - Incorrect dose administered [Unknown]
  - Product use issue [Unknown]
  - Pallor [Recovered/Resolved]
  - Off label use [Unknown]
  - Atrioventricular block complete [Recovered/Resolved]
  - Anaemia [Recovered/Resolved]
  - Asthenia [Recovered/Resolved]
  - Circumstance or information capable of leading to medication error [Recovering/Resolving]
  - Drug interaction [Unknown]
  - Bradyarrhythmia [Recovered/Resolved]
  - Duplicate therapy error [Recovered/Resolved]
  - Intentional product use issue [Unknown]
  - Gastrointestinal haemorrhage [Recovered/Resolved]
  - Gastritis erosive [Recovered/Resolved]
  - Product dispensing issue [Unknown]
  - Drug-disease interaction [Recovered/Resolved]
